FAERS Safety Report 4283836-X (Version None)
Quarter: 2004Q1

REPORT INFORMATION
  Report Type: 
  Country: None (occurrence: None)
  Receive Date: 20040130
  Receipt Date: 20040119
  Transmission Date: 20041129
  Serious: Yes (Death)
  Sender: FDA-Public Use
  Company Number: HQWYE539923JAN04

PATIENT

DRUGS (4)
  1. MYLOTARG [Suspect]
     Indication: ACUTE MYELOID LEUKAEMIA
     Dosage: 3MG/M^2 FREQUENCY AND DATES OF THERAPY NOT; INTRAVENOUS
     Route: 042
  2. DAUNORUBICIN HCL [Concomitant]
  3. CYTARABINE [Concomitant]
  4. THIOGUANINE [Concomitant]

REACTIONS (3)
  - HEPATOTOXICITY [None]
  - PULMONARY HAEMORRHAGE [None]
  - SEPSIS [None]
